FAERS Safety Report 8617329-3 (Version None)
Quarter: 2012Q3

REPORT INFORMATION
  Report Type: 
  Country: None (occurrence: None)
  Receive Date: 20120823
  Receipt Date: 20120815
  Transmission Date: 20120928
  Serious: Yes (Disabling, Other)
  Sender: FDA-Public Use
  Company Number: US-009507513-1206USA04952

PATIENT

DRUGS (3)
  1. FORTEO [Concomitant]
     Indication: OSTEOPOROSIS
     Route: 030
  2. FOSAMAX [Suspect]
     Indication: OSTEOPOROSIS
     Dosage: UNK
     Route: 048
     Dates: start: 20020101, end: 20090101
  3. FOSAMAX [Suspect]
     Indication: OSTEOPENIA

REACTIONS (7)
  - LOW TURNOVER OSTEOPATHY [None]
  - ORAL HERPES [None]
  - STRESS FRACTURE [None]
  - FRACTURE [None]
  - OSTEOPOROSIS [None]
  - TOOTH DISORDER [None]
  - FEMUR FRACTURE [None]
